FAERS Safety Report 9257777 (Version 3)
Quarter: 2013Q4

REPORT INFORMATION
  Report Type: Spontaneous
  Country: US (occurrence: US)
  Receive Date: 20130426
  Receipt Date: 20131227
  Transmission Date: 20140711
  Serious: Yes (Hospitalization)
  Sender: FDA-Public Use
  Company Number: US-ASTRAZENECA-2013SE27733

PATIENT
  Age: 57 Year
  Sex: Female
  Weight: 81.6 kg

DRUGS (12)
  1. NEXIUM [Suspect]
     Route: 048
     Dates: start: 201011, end: 20121226
  2. NEXIUM [Suspect]
     Route: 048
     Dates: start: 201011, end: 2013
  3. NEXIUM [Suspect]
     Route: 048
     Dates: start: 20101111
  4. TUMS [Concomitant]
     Indication: GASTROOESOPHAGEAL REFLUX DISEASE
     Dosage: AS NEEDED
     Dates: start: 2000
  5. ROLAIDS [Concomitant]
     Indication: GASTROOESOPHAGEAL REFLUX DISEASE
     Dosage: AS NEEDED
     Dates: start: 2000
  6. LIPITOR [Concomitant]
     Indication: BLOOD CHOLESTEROL INCREASED
  7. ESTRADIOL [Concomitant]
     Indication: OESTROGEN REPLACEMENT THERAPY
     Dates: start: 2004
  8. ZOLOFT [Concomitant]
     Indication: DEPRESSION
  9. NAPROXEN [Concomitant]
  10. CEPHALEXIN [Concomitant]
  11. SIMVASTATIN [Concomitant]
     Dates: start: 20120119
  12. VITAMIN D [Concomitant]
     Dates: start: 20120424

REACTIONS (8)
  - Foot fracture [Unknown]
  - Inflammation [Unknown]
  - Osteoporosis [Unknown]
  - Bone disorder [Unknown]
  - Fall [Unknown]
  - Ligament rupture [Unknown]
  - Vitamin D deficiency [Unknown]
  - Limb injury [Unknown]
